FAERS Safety Report 24844443 (Version 1)
Quarter: 2025Q1

REPORT INFORMATION
  Report Type: Report from Study
  Country: CA (occurrence: CA)
  Receive Date: 20250115
  Receipt Date: 20250115
  Transmission Date: 20250409
  Serious: Yes (Other)
  Sender: ABBVIE
  Company Number: CA-ABBVIE-6083495

PATIENT
  Age: 74 Year
  Sex: Male

DRUGS (1)
  1. SKYRIZI [Suspect]
     Active Substance: RISANKIZUMAB-RZAA
     Indication: Crohn^s disease
     Route: 058
     Dates: start: 20230801, end: 202411

REACTIONS (3)
  - Prostate cancer [Unknown]
  - Skin discolouration [Not Recovered/Not Resolved]
  - Dyschezia [Unknown]

NARRATIVE: CASE EVENT DATE: 20240701
